FAERS Safety Report 7303806-4 (Version None)
Quarter: 2011Q1

REPORT INFORMATION
  Report Type: 
  Country: None (occurrence: None)
  Receive Date: 20110221
  Receipt Date: 20110208
  Transmission Date: 20110831
  Serious: Yes (Hospitalization)
  Sender: FDA-Public Use
  Company Number: FR-ROCHE-759232

PATIENT
  Sex: Male

DRUGS (8)
  1. COPEGUS [Concomitant]
     Route: 065
     Dates: start: 20081001, end: 20090401
  2. RATIOGRASTIM [Concomitant]
     Dates: start: 20101001
  3. COPEGUS [Concomitant]
     Indication: HEPATITIS C
     Route: 065
     Dates: start: 20031201, end: 20040501
  4. PARACETAMOL [Concomitant]
     Dates: start: 20101001
  5. PEGASYS [Suspect]
     Route: 058
     Dates: start: 20091023, end: 20101116
  6. PEGASYS [Suspect]
     Indication: HEPATITIS C
     Route: 058
     Dates: start: 20031201, end: 20040501
  7. PEGASYS [Suspect]
     Route: 058
     Dates: start: 20081001, end: 20090401
  8. ACETAMINOPHEN AND TRAMADOL HCL [Concomitant]
     Dates: start: 20100901

REACTIONS (1)
  - VIITH NERVE PARALYSIS [None]
